FAERS Safety Report 10413181 (Version 1)
Quarter: 2014Q3

REPORT INFORMATION
  Report Type: Report from Study
  Country: JP (occurrence: JP)
  Receive Date: 20140827
  Receipt Date: 20140827
  Transmission Date: 20150326
  Serious: Yes (Hospitalization)
  Sender: FDA-Public Use
  Company Number: JP-SA-2014SA114129

PATIENT
  Sex: Male

DRUGS (2)
  1. DOCETAXEL [Suspect]
     Active Substance: DOCETAXEL
     Indication: OESOPHAGEAL CARCINOMA RECURRENT
     Dosage: EVERY 2 WEEKS.
     Route: 042
  2. NEDAPLATIN [Suspect]
     Active Substance: NEDAPLATIN
     Indication: OESOPHAGEAL CARCINOMA RECURRENT
     Dosage: EVERY 2 WEEKS.
     Route: 065

REACTIONS (1)
  - Infusion related reaction [Recovered/Resolved]
